FAERS Safety Report 9115814 (Version 1)
Quarter: 2013Q1

REPORT INFORMATION
  Report Type: Spontaneous
  Country: US (occurrence: US)
  Receive Date: 20130225
  Receipt Date: 20130225
  Transmission Date: 20140127
  Serious: Yes (Life-Threatening)
  Sender: FDA-Public Use
  Company Number: US-GLAXOSMITHKLINE-A0744949A

PATIENT
  Age: 78 Year
  Sex: Male

DRUGS (18)
  1. AVODART [Suspect]
     Indication: BENIGN PROSTATIC HYPERPLASIA
     Route: 048
     Dates: start: 2008
  2. TESTOSTERONE [Suspect]
     Indication: PRODUCT USED FOR UNKNOWN INDICATION
     Route: 065
     Dates: start: 2012
  3. LIPITOR [Concomitant]
  4. ACTOS [Concomitant]
  5. ZIAC [Concomitant]
  6. GLUCOTROL [Concomitant]
  7. CARDIZEM [Concomitant]
  8. ASPIRIN [Concomitant]
  9. COZAAR [Concomitant]
  10. TRAJENTA [Concomitant]
  11. OMEGA 3 [Concomitant]
  12. COREG [Concomitant]
  13. VITAMIN D [Concomitant]
  14. UNKNOWN MEDICATION [Concomitant]
  15. VITAMIN PILLS [Concomitant]
  16. 7-KETO-DEHYDROEPIANDROSTERONE [Concomitant]
  17. RESVERATROL [Concomitant]
  18. COENZYME Q10 [Concomitant]

REACTIONS (7)
  - Urinary tract infection [Recovering/Resolving]
  - Breast enlargement [Not Recovered/Not Resolved]
  - Erectile dysfunction [Not Recovered/Not Resolved]
  - Prostatic specific antigen decreased [Unknown]
  - Oestradiol increased [Recovering/Resolving]
  - Urinary incontinence [Unknown]
  - Drug ineffective [Unknown]
